FAERS Safety Report 23144155 (Version 2)
Quarter: 2023Q4

REPORT INFORMATION
  Report Type: Spontaneous
  Country: TN (occurrence: TN)
  Receive Date: 20231103
  Receipt Date: 20231206
  Transmission Date: 20240109
  Serious: Yes (Other)
  Sender: FDA-Public Use
  Company Number: TN-MYLANLABS-2023M1116656

PATIENT
  Age: 23 Year
  Sex: Male

DRUGS (2)
  1. ADALIMUMAB [Suspect]
     Active Substance: ADALIMUMAB\ISOPROPYL ALCOHOL
     Indication: Crohn^s disease
     Dosage: 40 MILLIGRAM, Q2W (FOR 6 YEARS)
     Route: 058
     Dates: end: 202303
  2. AZATHIOPRINE [Suspect]
     Active Substance: AZATHIOPRINE
     Indication: Crohn^s disease
     Dosage: 2.3 MILLIGRAM/KILOGRAM, QD, FOR 8 YEARS
     Route: 048
     Dates: end: 202303

REACTIONS (3)
  - Systemic inflammatory response syndrome [Unknown]
  - Diffuse large B-cell lymphoma stage I [Unknown]
  - Lymphoma [Unknown]

NARRATIVE: CASE EVENT DATE: 20230301
